FAERS Safety Report 8857281 (Version 1)
Quarter: 2012Q4

REPORT INFORMATION
  Report Type: 
  Country: US (occurrence: US)
  Receive Date: 20121024
  Receipt Date: 20121024
  Transmission Date: 20130627
  Serious: Yes (Hospitalization)
  Sender: FDA-Public Use
  Company Number: US-BIOGENIDEC-2012BI045805

PATIENT
  Age: 61 Year
  Sex: Female

DRUGS (1)
  1. AVONEX [Suspect]
     Indication: MULTIPLE SCLEROSIS
     Route: 030
     Dates: start: 1998, end: 20031031

REACTIONS (6)
  - Disturbance in attention [Recovered/Resolved]
  - Gait disturbance [Recovered/Resolved]
  - Headache [Recovered/Resolved]
  - Dizziness [Recovered/Resolved]
  - Pain [Recovered/Resolved]
  - Influenza like illness [Recovered/Resolved]
